FAERS Safety Report 7292059-1 (Version None)
Quarter: 2011Q1

REPORT INFORMATION
  Report Type: 
  Country: None (occurrence: None)
  Receive Date: 20110215
  Receipt Date: 20110207
  Transmission Date: 20110831
  Serious: Yes (Death, Hospitalization)
  Sender: FDA-Public Use
  Company Number: US-BIOGENIDEC-2011BI004667

PATIENT
  Sex: Female

DRUGS (1)
  1. AVONEX [Suspect]
     Indication: MULTIPLE SCLEROSIS
     Route: 030
     Dates: start: 20030529, end: 20110118

REACTIONS (4)
  - PROGRESSIVE MULTIPLE SCLEROSIS [None]
  - PULMONARY OEDEMA [None]
  - OPEN WOUND [None]
  - PNEUMONIA [None]
